FAERS Safety Report 10707936 (Version 2)
Quarter: 2015Q1

REPORT INFORMATION
  Report Type: Spontaneous
  Country: US (occurrence: US)
  Receive Date: 20150113
  Receipt Date: 20150213
  Transmission Date: 20150721
  Serious: Yes (Other)
  Sender: FDA-Public Use
  Company Number: US-ELI_LILLY_AND_COMPANY-US201501000639

PATIENT
  Age: 49 Year
  Sex: Female
  Weight: 138.32 kg

DRUGS (2)
  1. DAPAGLIFLOZIN [Concomitant]
     Active Substance: DAPAGLIFLOZIN
     Indication: DIABETES MELLITUS
     Route: 048
  2. INSULIN HUMAN [Suspect]
     Active Substance: INSULIN HUMAN
     Indication: TYPE 2 DIABETES MELLITUS
     Dosage: UNK
     Route: 058
     Dates: start: 20121217

REACTIONS (9)
  - Wrong technique in drug usage process [Unknown]
  - Diabetic retinopathy [Recovering/Resolving]
  - Diabetic ulcer [Unknown]
  - Blood glucose abnormal [Unknown]
  - Blindness [Recovering/Resolving]
  - Weight increased [Unknown]
  - Glaucoma [Recovering/Resolving]
  - Cataract [Unknown]
  - Vitreous haemorrhage [Unknown]

NARRATIVE: CASE EVENT DATE: 20141219
